FAERS Safety Report 5947081-1 (Version None)
Quarter: 2008Q4

REPORT INFORMATION
  Report Type: 
  Country: None (occurrence: None)
  Receive Date: 20081106
  Receipt Date: 20081027
  Transmission Date: 20090506
  Serious: Yes (Hospitalization)
  Sender: FDA-Public Use
  Company Number: 2008BI028987

PATIENT
  Age: 44 Year
  Sex: Female
  Weight: 76.2043 kg

DRUGS (6)
  1. TYSABRI [Suspect]
     Indication: MULTIPLE SCLEROSIS
     Dosage: 300 MG;QM;IV
     Route: 042
     Dates: start: 20080101
  2. XANAX [Concomitant]
  3. HYDROXYZINE [Concomitant]
  4. TOPAMAX [Concomitant]
  5. CITALOPRAM HYDROBROMIDE [Concomitant]
  6. ZANTAC [Concomitant]

REACTIONS (1)
  - PANCREATITIS [None]
